FAERS Safety Report 20755239 (Version 1)
Quarter: 2022Q2

REPORT INFORMATION
  Report Type: Spontaneous
  Country: CN (occurrence: CN)
  Receive Date: 20220427
  Receipt Date: 20220427
  Transmission Date: 20220721
  Serious: Yes (Hospitalization)
  Sender: FDA-Public Use
  Company Number: CN-LUPIN PHARMACEUTICALS INC.-2022-06155

PATIENT
  Age: 64 Year
  Sex: Male

DRUGS (10)
  1. POTASSIUM [Suspect]
     Active Substance: POTASSIUM
     Indication: Supplementation therapy
     Dosage: UNK-TABLET
     Route: 048
  2. POTASSIUM [Suspect]
     Active Substance: POTASSIUM
     Indication: Hypokalaemia
  3. MAGNESIUM [Suspect]
     Active Substance: MAGNESIUM
     Indication: Supplementation therapy
     Dosage: UNK
     Route: 065
  4. MAGNESIUM [Suspect]
     Active Substance: MAGNESIUM
     Indication: Hypokalaemia
  5. XELODA [Concomitant]
     Active Substance: CAPECITABINE
     Indication: Colorectal cancer metastatic
     Dosage: UNK (ADMINISTERED UNDER THE XELOX ADJUVANT CHEMOTHERAPY REGIMEN (6 CYCLES), LATER FOR MAINTENANCE (2
     Route: 048
  6. OXALIPLATIN [Concomitant]
     Active Substance: OXALIPLATIN
     Indication: Colorectal cancer metastatic
     Dosage: UNK (ADMINISTERED UNDER THE XELOX ADJUVANT CHEMOTHERAPY REGIMEN (6 CYCLES)
     Route: 065
  7. IRINOTECAN [Concomitant]
     Active Substance: IRINOTECAN
     Indication: Colorectal cancer metastatic
     Dosage: UNK (ADMINISTERED UNDER THE FOLFIRI CHEMOTHERAPY REGIMEN (8 CYCLES) AND UNDER THE XEIRI CHEMOTHERAPY
     Route: 065
  8. LEUCOVORIN [Concomitant]
     Active Substance: LEUCOVORIN
     Indication: Colorectal cancer metastatic
     Dosage: UNK (ADMINISTERED UNDER THE FOLFIRI CHEMOTHERAPY REGIMEN (8 CYCLES)
     Route: 065
  9. FLUOROURACIL [Concomitant]
     Active Substance: FLUOROURACIL
     Indication: Colorectal cancer metastatic
     Dosage: UNK (ADMINISTERED UNDER THE FOLFIRI CHEMOTHERAPY REGIMEN (8 CYCLES)
     Route: 065
  10. CETUXIMAB [Concomitant]
     Active Substance: CETUXIMAB
     Indication: Colorectal cancer metastatic
     Dosage: UNK (FOR TOTAL 37 CYCLES)
     Route: 065
     Dates: start: 20180301

REACTIONS (1)
  - Therapy non-responder [Unknown]
